FAERS Safety Report 14902342 (Version 2)
Quarter: 2018Q2

REPORT INFORMATION
  Report Type: Report from Study
  Country: CA (occurrence: CA)
  Receive Date: 20180516
  Receipt Date: 20180614
  Transmission Date: 20180711
  Serious: Yes (Hospitalization)
  Sender: FDA-Public Use
  Company Number: CA-JNJFOC-20180330303

PATIENT
  Age: 29 Year
  Sex: Female
  Weight: 66.2 kg

DRUGS (1)
  1. REMICADE [Suspect]
     Active Substance: INFLIXIMAB
     Indication: CROHN^S DISEASE
     Dosage: STRENGTH = 100 MG
     Route: 042
     Dates: start: 20090702

REACTIONS (6)
  - Pericarditis [Unknown]
  - Ear infection [Unknown]
  - Abdominal pain [Unknown]
  - Pleurisy [Unknown]
  - Costochondritis [Recovering/Resolving]
  - Streptococcal infection [Unknown]

NARRATIVE: CASE EVENT DATE: 20180320
